FAERS Safety Report 4684023-3 (Version None)
Quarter: 2005Q2

REPORT INFORMATION
  Report Type: 
  Country: None (occurrence: None)
  Receive Date: 20050603
  Receipt Date: 20040816
  Transmission Date: 20051028
  Serious: Yes (Other)
  Sender: FDA-Public Use
  Company Number: 2004223382US

PATIENT
  Sex: Female

DRUGS (3)
  1. ELLENCE [Suspect]
     Indication: BREAST CANCER RECURRENT
  2. CYCLOPHOSPHAMIDE [Suspect]
     Indication: BREAST CANCER RECURRENT
  3. FLUOROURACIL [Suspect]
     Indication: BREAST CANCER RECURRENT

REACTIONS (1)
  - ACUTE MYELOID LEUKAEMIA [None]
